FAERS Safety Report 7458270-1 (Version None)
Quarter: 2011Q2

REPORT INFORMATION
  Report Type: 
  Country: None (occurrence: None)
  Receive Date: 20110504
  Receipt Date: 20110429
  Transmission Date: 20111010
  Serious: Yes (Disabling)
  Sender: FDA-Public Use
  Company Number: US-MERCK-1105USA00018

PATIENT
  Age: 44 Year
  Sex: Male

DRUGS (1)
  1. SINEMET [Suspect]
     Indication: PARKINSON'S DISEASE
     Route: 048
     Dates: start: 20110414

REACTIONS (3)
  - MUSCLE CONTRACTURE [None]
  - PARKINSON'S DISEASE [None]
  - OVERDOSE [None]
